FAERS Safety Report 5893671-4 (Version None)
Quarter: 2008Q3

REPORT INFORMATION
  Report Type: 
  Country: None (occurrence: None)
  Receive Date: 20080923
  Receipt Date: 20071008
  Transmission Date: 20090109
  Serious: No
  Sender: FDA-Public Use
  Company Number: US-ASTRAZENECA-2007UW23402

PATIENT
  Age: 52 Year
  Sex: Female
  Weight: 90.7 kg

DRUGS (3)
  1. SEROQUEL [Suspect]
     Indication: ANXIETY
     Route: 048
     Dates: start: 20070901
  2. EFFEXOR [Concomitant]
  3. ARIMIDEX [Concomitant]
     Indication: BREAST CANCER
     Route: 048

REACTIONS (2)
  - AMNESIA [None]
  - HOT FLUSH [None]
